FAERS Safety Report 4750996-3 (Version None)
Quarter: 2005Q3

REPORT INFORMATION
  Report Type: 
  Country: None (occurrence: None)
  Receive Date: 20050822
  Receipt Date: 20050810
  Transmission Date: 20060218
  Serious: Yes (Other)
  Sender: FDA-Public Use
  Company Number: 2005-02943

PATIENT
  Age: 16 Year
  Sex: Female
  Weight: 43.1 kg

DRUGS (5)
  1. MINOCYCLINE HYDROCHLORIDE [Suspect]
     Indication: ACNE
     Dosage: 1 CAPSUL, BID, ORAL
     Route: 048
     Dates: start: 20050710, end: 20050728
  2. MINOCYCLINE HYDROCHLORIDE [Suspect]
     Indication: ACNE
     Dosage: 1 CAPSUL, BID, ORAL
     Route: 048
     Dates: start: 20050801, end: 20050808
  3. CETAPHIL (STEARYL ALCOHOL, PROPYLENE GLYCOL) [Concomitant]
  4. DIFFERIN [Concomitant]
  5. PREVOXYL-4 GEL [Concomitant]

REACTIONS (5)
  - CONVULSION [None]
  - DEHYDRATION [None]
  - FALL [None]
  - HEAT EXHAUSTION [None]
  - TRISMUS [None]
